FAERS Safety Report 4370840-6 (Version None)
Quarter: 2004Q2

REPORT INFORMATION
  Report Type: 
  Country: None (occurrence: None)
  Receive Date: 20040526
  Receipt Date: 20040512
  Transmission Date: 20050107
  Serious: Yes (Hospitalization, Other)
  Sender: FDA-Public Use
  Company Number: WAES 0403GBR00218

PATIENT
  Age: 86 Year
  Sex: Female

DRUGS (12)
  1. COZAAR [Suspect]
     Indication: CARDIAC FAILURE
     Dosage: PO
     Route: 048
     Dates: start: 20030422, end: 20040301
  2. COZAAR [Suspect]
     Indication: CARDIAC FAILURE
     Dosage: PO
     Route: 048
     Dates: start: 20040301, end: 20040407
  3. COZAAR [Suspect]
     Indication: CARDIAC FAILURE
     Dosage: PO
     Route: 048
     Dates: start: 20040408
  4. VIOXX [Concomitant]
  5. ACETAMINOPHEN- PROPOXYPHENE HCL TAB [Concomitant]
  6. AMIODARONE HCL [Concomitant]
  7. AMLODIPINE MALEATE [Concomitant]
  8. ASPIRIN [Concomitant]
  9. FERROUSSO4 [Concomitant]
  10. FUROSEMIDE [Concomitant]
  11. NITRAZEPAM [Concomitant]
  12. SIMVASTATIN [Concomitant]

REACTIONS (18)
  - ACCIDENT [None]
  - ACUTE PULMONARY OEDEMA [None]
  - ALANINE AMINOTRANSFERASE INCREASED [None]
  - ASPARTATE AMINOTRANSFERASE INCREASED [None]
  - BLOOD CREATININE INCREASED [None]
  - BLOOD LACTATE DEHYDROGENASE INCREASED [None]
  - BLOOD SODIUM DECREASED [None]
  - BLOOD UREA INCREASED [None]
  - BLOOD URIC ACID INCREASED [None]
  - DYSPNOEA [None]
  - ELECTROLYTE IMBALANCE [None]
  - FALL [None]
  - HAEMATOCRIT DECREASED [None]
  - HAEMOGLOBIN DECREASED [None]
  - LYMPHOCYTE COUNT DECREASED [None]
  - NEUTROPHIL COUNT ABNORMAL [None]
  - RED BLOOD CELL COUNT DECREASED [None]
  - SKIN LACERATION [None]
